FAERS Safety Report 5396856-9 (Version None)
Quarter: 2007Q3

REPORT INFORMATION
  Report Type: 
  Country: None (occurrence: None)
  Receive Date: 20070725
  Receipt Date: 20070717
  Transmission Date: 20080115
  Serious: Yes (Other)
  Sender: FDA-Public Use
  Company Number: PHEH2007US01931

PATIENT
  Age: 29 Year
  Sex: Male

DRUGS (7)
  1. GLEEVEC [Suspect]
     Indication: CHRONIC MYELOID LEUKAEMIA
     Dosage: 400 MG, QD
     Route: 048
     Dates: start: 20050801
  2. SEROQUEL [Concomitant]
     Dosage: 600 MG, QHS
     Route: 048
  3. TOPAMAX [Concomitant]
  4. FENTANYL TRANSDERMAL SYSTEM [Concomitant]
  5. COMPAZINE [Concomitant]
     Indication: NAUSEA
     Dosage: 10 MG, QHS
     Route: 048
  6. REGLAN [Concomitant]
     Indication: NAUSEA
     Dosage: 10 MG, BID
     Route: 048
  7. OXYCODONE HCL [Concomitant]
     Indication: PAIN
     Dosage: 30 MG, BID
     Route: 048

REACTIONS (4)
  - ARTHRALGIA [None]
  - BONE INFARCTION [None]
  - JOINT EFFUSION [None]
  - TENDON DISORDER [None]
